FAERS Safety Report 13344813 (Version 1)
Quarter: 2017Q1

REPORT INFORMATION
  Report Type: Spontaneous
  Country: US (occurrence: US)
  Receive Date: 20170316
  Receipt Date: 20170316
  Transmission Date: 20170428
  Serious: Yes (Death, Hospitalization)
  Sender: FDA-Public Use
  Company Number: None

PATIENT
  Age: 64 Year
  Sex: Male
  Weight: 65.9 kg

DRUGS (9)
  1. SOFOSBUVIR 400 MG GILEAD [Suspect]
     Active Substance: SOFOSBUVIR
     Indication: HEPATITIS C
     Route: 048
     Dates: start: 20160528, end: 20160722
  2. ENOXAPARIN [Concomitant]
     Active Substance: ENOXAPARIN
  3. OMEPRAZOLE. [Concomitant]
     Active Substance: OMEPRAZOLE
  4. OXYCODONE [Concomitant]
     Active Substance: OXYCODONE
  5. DACLATASVIR 60 MG BMS [Suspect]
     Active Substance: DACLATASVIR
     Indication: HEPATITIS C
     Route: 048
     Dates: start: 20160528, end: 20160722
  6. MYFORTIC [Concomitant]
     Active Substance: MYCOPHENOLATE SODIUM
  7. XIFAXAN [Concomitant]
     Active Substance: RIFAXIMIN
  8. PRENATAL MULTIVITAMIN [Concomitant]
  9. TACROLIMUS. [Concomitant]
     Active Substance: TACROLIMUS

REACTIONS (6)
  - Cardiac arrest [None]
  - Enterococcal bacteraemia [None]
  - Sepsis [None]
  - Anastomotic leak [None]
  - Enterococcal infection [None]
  - Abdominal abscess [None]

NARRATIVE: CASE EVENT DATE: 20160722
